FAERS Safety Report 7152792-9 (Version None)
Quarter: 2010Q4

REPORT INFORMATION
  Report Type: 
  Country: None (occurrence: None)
  Receive Date: 20101213
  Receipt Date: 20101129
  Transmission Date: 20110411
  Serious: Yes (Other)
  Sender: FDA-Public Use
  Company Number: PHHY2010AU64674

PATIENT
  Sex: Male

DRUGS (5)
  1. CLOZARIL [Suspect]
     Indication: SCHIZOPHRENIA
     Dosage: 12.5 MG
     Route: 048
     Dates: start: 20100713
  2. CLOZARIL [Suspect]
     Indication: CATATONIA
  3. LITHIUM [Concomitant]
     Dosage: 250 MG TWICE A DAY
  4. HYDROCHLOROTHIAZIDE [Concomitant]
     Dosage: 12.5 MG DAILY
  5. ESOMEPRAZOLE [Concomitant]
     Dosage: 40 MG DAILY

REACTIONS (4)
  - CATATONIA [None]
  - DEHYDRATION [None]
  - DRUG DOSE OMISSION [None]
  - EATING DISORDER [None]
